FAERS Safety Report 6956852-4 (Version None)
Quarter: 2010Q3

REPORT INFORMATION
  Report Type: 
  Country: None (occurrence: None)
  Receive Date: 20100830
  Receipt Date: 20100820
  Transmission Date: 20110219
  Serious: Yes (Other)
  Sender: FDA-Public Use
  Company Number: GB-AMGEN-QUU433195

PATIENT
  Age: 56 Year
  Sex: Female

DRUGS (6)
  1. ENBREL [Suspect]
     Indication: PRODUCT USED FOR UNKNOWN INDICATION
     Dosage: UNKNOWN
     Dates: start: 20040101
  2. VENLAFAXINE HYDROCHLORIDE [Concomitant]
     Dosage: 75MG (FREQUENCY UNKNOWN)
  3. ACETAMINOPHEN [Concomitant]
     Dosage: DOSAGE UNSPECIFIED, 4 TIMES DAILY
     Route: 048
  4. RELIFEX [Concomitant]
  5. BUPRENORPHINE [Concomitant]
     Dosage: 20 UG (FREQUENCY UNKNOWN)
     Route: 061
  6. LANSOPRAZOLE [Concomitant]
     Route: 048

REACTIONS (1)
  - ALVEOLITIS [None]
